FAERS Safety Report 17571508 (Version 1)
Quarter: 2020Q1

REPORT INFORMATION
  Report Type: Report from Study
  Country: US (occurrence: US)
  Receive Date: 20200323
  Receipt Date: 20200323
  Transmission Date: 20200409
  Serious: Yes (Death)
  Sender: FDA-Public Use
  Company Number: NVSC2020US081984

PATIENT
  Sex: Female
  Weight: 54.9 kg

DRUGS (1)
  1. LAMPRENE [Suspect]
     Active Substance: CLOFAZIMINE
     Indication: MYCOBACTERIUM AVIUM COMPLEX INFECTION
     Dosage: 100 MG
     Route: 048
     Dates: start: 20190616, end: 20200218

REACTIONS (3)
  - Chest pain [Unknown]
  - Chronic respiratory failure [Fatal]
  - Dyspnoea [Unknown]
